FAERS Safety Report 24068894 (Version 1)
Quarter: 2024Q3

REPORT INFORMATION
  Report Type: Spontaneous
  Country: IN (occurrence: IN)
  Receive Date: 20240710
  Receipt Date: 20240710
  Transmission Date: 20241017
  Serious: No
  Sender: ROCHE
  Company Number: IN-ROCHE-3563703

PATIENT
  Age: 70 Year
  Sex: Female

DRUGS (3)
  1. VABYSMO [Suspect]
     Active Substance: FARICIMAB\FARICIMAB-SVOA
     Indication: Neovascular age-related macular degeneration
     Route: 050
     Dates: start: 20240306
  2. MOXIFLOXACIN [Concomitant]
     Active Substance: MOXIFLOXACIN
     Dosage: ONE DROP 6 TIMES IN A DAY FOR 7 DAYS
     Route: 047
  3. TEARS NATURALE FORTE [Concomitant]
     Active Substance: DEXTRAN 70\GLYCERIN\HYPROMELLOSES
     Dosage: ONE DROP 6 TIMES IN A DAY
     Route: 047

REACTIONS (2)
  - Off label use [Unknown]
  - No adverse event [Unknown]
